FAERS Safety Report 7818008 (Version 31)
Quarter: 2014Q2

REPORT INFORMATION
  Report Type: Spontaneous
  Country: US (occurrence: US)
  Receive Date: 20110217
  Receipt Date: 20140418
  Transmission Date: 20141212
  Serious: Yes (Death, Hospitalization, Other)
  Sender: FDA-Public Use
  Company Number: PHEH2011US00448

PATIENT
  Age: 70 Year
  Sex: Female

DRUGS (24)
  1. ZOMETA [Suspect]
     Indication: BREAST CANCER METASTATIC
     Dosage: 4 MG, QW
     Route: 042
     Dates: start: 200207, end: 200702
  2. DIOVAN [Concomitant]
     Dosage: 80 MG, DAILY
  3. ASA [Concomitant]
  4. COREG [Concomitant]
     Dosage: 25 MG, BID
  5. SPIRONOLACTONE [Concomitant]
  6. SIMVASTATIN [Concomitant]
  7. MORPHINE [Concomitant]
  8. OXYCODONE [Concomitant]
  9. PERCOCET [Concomitant]
  10. ACCUPRIL [Concomitant]
  11. LANOXIN [Concomitant]
  12. PENICILLIN NOS [Concomitant]
  13. ALDACTONE [Concomitant]
     Dosage: 25 MG, QD
     Route: 048
  14. LIPITOR [Concomitant]
     Dosage: 20 MG, QD
     Route: 048
  15. ARANESP [Concomitant]
  16. DIGOXIN [Concomitant]
  17. QUINAPRIL [Concomitant]
  18. ECOTRIN [Concomitant]
     Dosage: 325 MG, QD
  19. BENICAR [Concomitant]
  20. PENICILLIN V-K [Concomitant]
  21. PERIDEX [Concomitant]
  22. VICODIN [Concomitant]
  23. COUMADIN [Concomitant]
  24. HEPARIN [Concomitant]

REACTIONS (200)
  - Cardiopulmonary failure [Fatal]
  - Osteonecrosis of jaw [Unknown]
  - Pain [Unknown]
  - Disability [Unknown]
  - Deformity [Unknown]
  - Impaired work ability [Unknown]
  - Anxiety [Unknown]
  - Decreased interest [Unknown]
  - Pain in jaw [Unknown]
  - Pathological fracture [Unknown]
  - Osteolysis [Unknown]
  - Exposed bone in jaw [Unknown]
  - Fistula [Unknown]
  - Osteomyelitis acute [Unknown]
  - Fibrosis [Unknown]
  - Hyperlipidaemia [Unknown]
  - Cardiac failure congestive [Unknown]
  - Aortic aneurysm [Unknown]
  - Hypertension [Unknown]
  - Peripheral vascular disorder [Unknown]
  - Chronic obstructive pulmonary disease [Unknown]
  - Anaemia [Unknown]
  - Coronary artery disease [Unknown]
  - Angina unstable [Unknown]
  - Arteriosclerosis [Unknown]
  - Intervertebral disc degeneration [Unknown]
  - Radiculopathy [Unknown]
  - Back pain [Recovering/Resolving]
  - Left ventricular dysfunction [Unknown]
  - Tricuspid valve incompetence [Unknown]
  - Mitral valve incompetence [Unknown]
  - Sciatica [Unknown]
  - Cardiomyopathy [Unknown]
  - Dyspnoea [Unknown]
  - Respiratory failure [Unknown]
  - Rheumatic fever [Unknown]
  - Aortic arteriosclerosis [Unknown]
  - Headache [Recovering/Resolving]
  - Musculoskeletal pain [Unknown]
  - Pain in extremity [Unknown]
  - Cerumen impaction [Unknown]
  - Palpitations [Unknown]
  - Ear pain [Unknown]
  - C-reactive protein increased [Unknown]
  - Metastases to bone [Unknown]
  - Cataract [Unknown]
  - Atrioventricular block first degree [Unknown]
  - Femoral artery occlusion [Unknown]
  - Facial pain [Unknown]
  - Urinary tract infection [Unknown]
  - Hypotension [Unknown]
  - Groin pain [Unknown]
  - Sinus disorder [Unknown]
  - Cardiac murmur [Unknown]
  - Deafness [Unknown]
  - Haemorrhage intracranial [Unknown]
  - Arrhythmia [Unknown]
  - Carpal tunnel syndrome [Unknown]
  - Device dislocation [Unknown]
  - Amnesia [Unknown]
  - Gait disturbance [Unknown]
  - Intracranial aneurysm [Recovering/Resolving]
  - Sinusitis [Unknown]
  - Cardiomegaly [Unknown]
  - Emphysema [Unknown]
  - Scoliosis [Unknown]
  - Intervertebral disc protrusion [Unknown]
  - Neuropathy peripheral [Unknown]
  - Sleep apnoea syndrome [Unknown]
  - Hiatus hernia [Unknown]
  - Haemorrhoids [Unknown]
  - Diverticulum [Unknown]
  - Gastrointestinal inflammation [Unknown]
  - Chronic gastritis [Unknown]
  - Metaplasia [Unknown]
  - Osteoarthritis [Unknown]
  - Pelvic neoplasm [Unknown]
  - Hepatic neoplasm [Unknown]
  - Pulmonary mass [Unknown]
  - Cervical radiculopathy [Unknown]
  - Neck pain [Unknown]
  - Muscle spasms [Unknown]
  - Dry gangrene [Unknown]
  - Pulmonary embolism [Unknown]
  - Deep vein thrombosis [Unknown]
  - Neuritis [Unknown]
  - Bradycardia [Unknown]
  - Cardiac valve disease [Unknown]
  - Hepatic cirrhosis [Unknown]
  - Upper gastrointestinal haemorrhage [Recovered/Resolved]
  - Haematemesis [Unknown]
  - Dyspepsia [Unknown]
  - Oesophageal varices haemorrhage [Unknown]
  - Lumbar spinal stenosis [Unknown]
  - Portal hypertension [Unknown]
  - Cerebral ventricle dilatation [Unknown]
  - Tooth infection [Unknown]
  - Chronic sinusitis [Unknown]
  - Obstruction [Unknown]
  - Subarachnoid haemorrhage [Unknown]
  - Fall [Unknown]
  - Joint dislocation [Unknown]
  - Epistaxis [Unknown]
  - Dermatophytosis [Unknown]
  - Peripheral sensory neuropathy [Unknown]
  - Renal failure chronic [Unknown]
  - Pneumonia [Unknown]
  - Hypoaesthesia [Unknown]
  - Chest pain [Unknown]
  - Vitreous detachment [Unknown]
  - Aortic calcification [Unknown]
  - Cyclic neutropenia [Unknown]
  - Lymphadenopathy [Unknown]
  - Somnolence [Unknown]
  - Colitis [Unknown]
  - Respiratory distress [Unknown]
  - Large intestine polyp [Unknown]
  - Vascular occlusion [Unknown]
  - Aortic disorder [Unknown]
  - Exostosis [Unknown]
  - Leukocytosis [Unknown]
  - Hepatomegaly [Unknown]
  - Hepatic steatosis [Unknown]
  - Gallbladder disorder [Unknown]
  - Pollakiuria [Unknown]
  - Bone lesion [Unknown]
  - Rotator cuff syndrome [Unknown]
  - Intervertebral disc space narrowing [Unknown]
  - Spinal osteoarthritis [Unknown]
  - Arterial occlusive disease [Unknown]
  - Spondylolisthesis [Unknown]
  - Pleural effusion [Unknown]
  - Tachycardia [Unknown]
  - Peripheral swelling [Unknown]
  - Hypoperfusion [Unknown]
  - Ventricular hypokinesia [Unknown]
  - Atrophy [Unknown]
  - Gallbladder oedema [Unknown]
  - Cholecystitis acute [Unknown]
  - Cerebral infarction [Unknown]
  - Encephalomalacia [Unknown]
  - Cerebral microangiopathy [Unknown]
  - Cerebral ischaemia [Unknown]
  - Mental status changes [Unknown]
  - Foot deformity [Unknown]
  - Peripheral artery stenosis [Unknown]
  - Sepsis [Unknown]
  - Intermittent claudication [Unknown]
  - Sick sinus syndrome [Unknown]
  - Atrioventricular block second degree [Unknown]
  - Migraine [Unknown]
  - Balance disorder [Unknown]
  - Bundle branch block left [Unknown]
  - Encephalopathy [Unknown]
  - Lethargy [Unknown]
  - Skin ulcer [Unknown]
  - Clostridium difficile colitis [Unknown]
  - Wound [Unknown]
  - Laceration [Unknown]
  - Embolism arterial [Unknown]
  - Bacteraemia [Unknown]
  - Cachexia [Unknown]
  - Lactic acidosis [Unknown]
  - Malnutrition [Unknown]
  - Altered state of consciousness [Unknown]
  - Arteriosclerosis coronary artery [Unknown]
  - Hypovolaemia [Unknown]
  - Cellulitis [Unknown]
  - Renal artery thrombosis [Unknown]
  - Tachypnoea [Unknown]
  - Bacterial infection [Unknown]
  - Staphylococcal infection [Unknown]
  - Device occlusion [Unknown]
  - Blister [Unknown]
  - Ecchymosis [Unknown]
  - Skin disorder [Unknown]
  - Retroperitoneal haematoma [Unknown]
  - Decubitus ulcer [Unknown]
  - Peripheral ischaemia [Unknown]
  - Pericardial effusion [Unknown]
  - Septic shock [Unknown]
  - Localised infection [Unknown]
  - Tooth loss [Unknown]
  - Cerebral disorder [Unknown]
  - Skin necrosis [Unknown]
  - Dermatitis [Unknown]
  - Respiratory acidosis [Unknown]
  - Atelectasis [Unknown]
  - Oedema [Unknown]
  - Left atrial dilatation [Unknown]
  - Pulmonary valve incompetence [Unknown]
  - Cardiogenic shock [Unknown]
  - Hepatic cyst [Unknown]
  - Blood glucose increased [Unknown]
  - Hepatic lesion [Unknown]
  - Abdominal mass [Unknown]
  - Skin lesion [Unknown]
  - Cluster headache [Unknown]
  - Aortic valve sclerosis [Unknown]
  - Aortic valve incompetence [Unknown]
